FAERS Safety Report 23552009 (Version 1)
Quarter: 2024Q1

REPORT INFORMATION
  Report Type: Other
  Country: US (occurrence: None)
  Receive Date: 20240222
  Receipt Date: 20240222
  Transmission Date: 20240410
  Serious: Yes (Hospitalization)
  Sender: FDA-Public Use
  Company Number: US-ROCHE-3509596

PATIENT
  Age: 68 Year
  Sex: Male
  Weight: 109.87 kg

DRUGS (23)
  1. VENCLEXTA [Suspect]
     Active Substance: VENETOCLAX
     Indication: Chronic lymphocytic leukaemia
     Dosage: LAST DOSE 12/FEB/2024
     Route: 048
     Dates: start: 20240120
  2. GAZYVA [Suspect]
     Active Substance: OBINUTUZUMAB
     Indication: Chronic lymphocytic leukaemia
     Dosage: LAST DOSE 06/FEB/2024
     Route: 042
     Dates: start: 20240123
  3. NOVOLOG [Concomitant]
     Active Substance: INSULIN ASPART
  4. ATORVASTATIN [Concomitant]
     Active Substance: ATORVASTATIN
  5. BUPROPION [Concomitant]
     Active Substance: BUPROPION
  6. ERGOCALCIFEROL [Concomitant]
     Active Substance: ERGOCALCIFEROL
  7. CYCLOBENZAPRINE [Concomitant]
     Active Substance: CYCLOBENZAPRINE
  8. ALLOPURINOL [Concomitant]
     Active Substance: ALLOPURINOL
  9. TORSEMIDE [Concomitant]
     Active Substance: TORSEMIDE
  10. MECLIZINE [Concomitant]
     Active Substance: MECLIZINE HYDROCHLORIDE
  11. PANTOPRAZOLE [Concomitant]
     Active Substance: PANTOPRAZOLE
  12. FERROUS SULFATE [Concomitant]
     Active Substance: FERROUS SULFATE
  13. INSPRA [Concomitant]
     Active Substance: EPLERENONE
  14. TAMSULOSIN [Concomitant]
     Active Substance: TAMSULOSIN
  15. ACYCLOVIR [Concomitant]
     Active Substance: ACYCLOVIR
  16. JANUVIA [Concomitant]
     Active Substance: SITAGLIPTIN PHOSPHATE
  17. HYDRALAZINE [Concomitant]
     Active Substance: HYDRALAZINE HYDROCHLORIDE
  18. METOPROLOL [Concomitant]
     Active Substance: METOPROLOL
  19. GABAPENTIN [Concomitant]
     Active Substance: GABAPENTIN
  20. CLONIDINE [Concomitant]
     Active Substance: CLONIDINE
  21. XARELTO [Concomitant]
     Active Substance: RIVAROXABAN
  22. POTASSIUM [Concomitant]
     Active Substance: POTASSIUM
  23. TRIAMCINOLONE [Concomitant]
     Active Substance: TRIAMCINOLONE

REACTIONS (6)
  - Tumour lysis syndrome [Recovered/Resolved]
  - Chronic kidney disease [Not Recovered/Not Resolved]
  - White blood cell count decreased [Recovered/Resolved]
  - Oedema peripheral [Not Recovered/Not Resolved]
  - Nausea [Not Recovered/Not Resolved]
  - Micturition disorder [Not Recovered/Not Resolved]

NARRATIVE: CASE EVENT DATE: 20240120
